FAERS Safety Report 9363785 (Version 1)
Quarter: 2013Q2

REPORT INFORMATION
  Report Type: Report from Study
  Country: US (occurrence: US)
  Receive Date: 20130624
  Receipt Date: 20130624
  Transmission Date: 20140414
  Serious: Yes (Hospitalization, Other)
  Sender: FDA-Public Use
  Company Number: US-SANOFI-AVENTIS-2013SA059703

PATIENT
  Age: 70 Year
  Sex: Male
  Weight: 90 kg

DRUGS (20)
  1. CABAZITAXEL [Suspect]
     Indication: PROSTATE CANCER
     Route: 042
     Dates: start: 20130208
  2. PREDNISONE [Suspect]
     Indication: PROSTATE CANCER
     Route: 065
     Dates: start: 20090131
  3. ANTINEOPLASTIC AGENTS [Suspect]
     Indication: PROSTATE CANCER
     Route: 042
     Dates: start: 20130129, end: 20130506
  4. FLEXERIL [Concomitant]
     Indication: MYALGIA
     Route: 048
     Dates: start: 20121106
  5. KLONOPIN [Concomitant]
     Indication: ANXIETY
     Route: 048
  6. ADVIL [Concomitant]
     Indication: PAIN
     Route: 048
     Dates: start: 201211
  7. PHENERGAN [Concomitant]
     Indication: NAUSEA
     Route: 048
     Dates: start: 20130130
  8. ZOMETA [Concomitant]
     Indication: METASTASES TO BONE
     Route: 042
     Dates: start: 20130208
  9. LUPRON [Concomitant]
     Indication: PROSTATE CANCER
     Route: 030
     Dates: start: 20130129
  10. LORTAB [Concomitant]
     Indication: BONE PAIN
     Route: 048
     Dates: start: 20130204
  11. NEULASTA [Concomitant]
     Indication: NEUTROPENIA
     Route: 030
     Dates: start: 20130211
  12. ZOFRAN [Concomitant]
     Indication: NAUSEA
     Route: 048
     Dates: start: 20130215
  13. ZOFRAN [Concomitant]
     Indication: VOMITING
     Route: 048
     Dates: start: 20130215
  14. OMEPRAZOLE [Concomitant]
     Indication: PROPHYLAXIS
     Route: 048
     Dates: start: 20130215
  15. COMPAZINE [Concomitant]
     Indication: NAUSEA
     Route: 054
     Dates: start: 20130304
  16. COMPAZINE [Concomitant]
     Indication: VOMITING
     Route: 054
     Dates: start: 20130304
  17. VITAMIN B6 [Concomitant]
     Indication: NEUROPATHY PERIPHERAL
     Route: 048
     Dates: start: 20130325
  18. ARANESP [Concomitant]
     Indication: ANAEMIA
     Dosage: EVERY TWO WEEKS
     Route: 058
     Dates: start: 20130325
  19. LISINOPRIL [Concomitant]
     Indication: HYPERTENSION
     Route: 048
     Dates: start: 20130312
  20. DULCOLAX [Concomitant]
     Indication: CONSTIPATION
     Route: 048
     Dates: start: 20130201

REACTIONS (1)
  - Embolism [Recovered/Resolved]
